FAERS Safety Report 14343151 (Version 1)
Quarter: 2018Q1

REPORT INFORMATION
  Report Type: Spontaneous
  Country: US (occurrence: US)
  Receive Date: 20180102
  Receipt Date: 20180102
  Transmission Date: 20180509
  Serious: Yes (Other)
  Sender: FDA-Public Use
  Company Number: US-JNJFOC-20171236914

PATIENT

DRUGS (4)
  1. LASIX [Concomitant]
     Active Substance: FUROSEMIDE
  2. IMBRUVICA [Suspect]
     Active Substance: IBRUTINIB
     Indication: CHRONIC LYMPHOCYTIC LEUKAEMIA
     Route: 065
  3. ASPIRIN. [Concomitant]
     Active Substance: ASPIRIN
  4. ZYRTEC [Concomitant]
     Active Substance: CETIRIZINE HYDROCHLORIDE

REACTIONS (16)
  - Body temperature increased [Unknown]
  - Rash generalised [Not Recovered/Not Resolved]
  - Joint swelling [Unknown]
  - Anaemia [Unknown]
  - Chronic kidney disease [Unknown]
  - Mycosis fungoides [Unknown]
  - Asthenia [Unknown]
  - Disease progression [Unknown]
  - Neutrophil count abnormal [Unknown]
  - Oedema peripheral [Unknown]
  - Nausea [Unknown]
  - Feeling abnormal [Unknown]
  - Platelet count abnormal [Unknown]
  - Alopecia [Unknown]
  - Abdominal pain [Unknown]
  - Muscle spasms [Unknown]
